FAERS Safety Report 5273706-2 (Version None)
Quarter: 2007Q1

REPORT INFORMATION
  Report Type: 
  Country: None (occurrence: None)
  Receive Date: 20070321
  Receipt Date: 20070321
  Transmission Date: 20070707
  Serious: No
  Sender: FDA-Public Use
  Company Number: None

PATIENT
  Age: 40 Year
  Sex: Male
  Weight: 63.7 kg

DRUGS (1)
  1. ASMANEX TWISTHALER [Suspect]
     Indication: ASTHMA
     Dosage: 440 MCG TWICE DAILY INHAL
     Route: 055
     Dates: start: 20060610, end: 20070206

REACTIONS (4)
  - ASTHMA [None]
  - CONDITION AGGRAVATED [None]
  - DRUG INEFFECTIVE [None]
  - MEDICAL DEVICE COMPLICATION [None]
